FAERS Safety Report 16516051 (Version 1)
Quarter: 2019Q3

REPORT INFORMATION
  Report Type: Spontaneous
  Country: US (occurrence: US)
  Receive Date: 20190702
  Receipt Date: 20190702
  Transmission Date: 20191004
  Serious: Yes (Life-Threatening)
  Sender: FDA-Public Use
  Company Number: None

PATIENT
  Age: 59 Year
  Sex: Female
  Weight: 54.9 kg

DRUGS (9)
  1. VAGISIL ANTI-ITCH CREME REGULAR STRENGTH [Suspect]
     Active Substance: BENZOCAINE\RESORCINOL
     Indication: VULVOVAGINAL DISCOMFORT
     Dosage: ?          OTHER STRENGTH:1^ STRIP;?
     Route: 067
     Dates: start: 20190701, end: 20190701
  2. ALLEGRA [Concomitant]
     Active Substance: FEXOFENADINE HYDROCHLORIDE
  3. CRANBERRY. [Concomitant]
     Active Substance: CRANBERRY
  4. SYNTHROID [Concomitant]
     Active Substance: LEVOTHYROXINE SODIUM
  5. AMLODIPINE [Concomitant]
     Active Substance: AMLODIPINE BESYLATE
  6. PEPCID [Concomitant]
     Active Substance: FAMOTIDINE
  7. BIOTIN [Concomitant]
     Active Substance: BIOTIN
  8. PREMARIN [Concomitant]
     Active Substance: ESTROGENS, CONJUGATED
  9. VITAMIN C [Concomitant]
     Active Substance: ASCORBIC ACID

REACTIONS (7)
  - Chest pain [None]
  - Eructation [None]
  - Pruritus generalised [None]
  - Generalised oedema [None]
  - Cyanosis [None]
  - Nausea [None]
  - Generalised erythema [None]

NARRATIVE: CASE EVENT DATE: 20190701
